FAERS Safety Report 20390589 (Version 1)
Quarter: 2022Q1

REPORT INFORMATION
  Report Type: Report from Study
  Country: AR (occurrence: AR)
  Receive Date: 20220128
  Receipt Date: 20220128
  Transmission Date: 20220423
  Serious: Yes (Disabling, Other)
  Sender: FDA-Public Use
  Company Number: AR-NOVARTISPH-NVSC2022AR013460

PATIENT
  Sex: Female

DRUGS (2)
  1. DIOVAN [Suspect]
     Active Substance: VALSARTAN
     Indication: Hypertension
     Dosage: 160 MG, QD (SINCE MANY YEARS AGO)
     Route: 065
  2. DIOVAN [Suspect]
     Active Substance: VALSARTAN
     Dosage: 80 MG, QD
     Route: 065
     Dates: start: 20210914

REACTIONS (8)
  - Limb discomfort [Unknown]
  - Diabetes mellitus [Recovering/Resolving]
  - Hypoacusis [Unknown]
  - Diabetic neuropathy [Unknown]
  - Visual impairment [Recovering/Resolving]
  - Anaemia [Unknown]
  - Wrong technique in product usage process [Recovering/Resolving]
  - Drug ineffective [Unknown]

NARRATIVE: CASE EVENT DATE: 20210101
